FAERS Safety Report 8971252 (Version 1)
Quarter: 2012Q4

REPORT INFORMATION
  Report Type: Report from Study
  Country: US (occurrence: US)
  Receive Date: 20121218
  Receipt Date: 20121218
  Transmission Date: 20130627
  Serious: Yes (Hospitalization)
  Sender: FDA-Public Use
  Company Number: US-009507513-1212USA004513

PATIENT
  Age: 60 Year
  Sex: Female
  Weight: 77.64 kg

DRUGS (9)
  1. TEMODAR [Suspect]
     Indication: GLIOBLASTOMA MULTIFORME
     Dosage: 140 UNK, qd
     Route: 048
     Dates: start: 20090727, end: 20090904
  2. BEVACIZUMAB [Suspect]
     Indication: GLIOBLASTOMA MULTIFORME
     Dosage: 800 mg,1 in 2 week
     Route: 042
     Dates: start: 20090727, end: 20090904
  3. LAMICTAL [Suspect]
     Indication: CONVULSION
     Dosage: UNK
  4. KEPPRA XR [Concomitant]
     Dosage: 1500 mg, bid (Keppra XR)
     Route: 048
     Dates: start: 20090716, end: 20090915
  5. NEXIUM [Concomitant]
     Dosage: 40 mg, qd
  6. VALIUM [Concomitant]
     Dosage: 5 mg, prn
     Route: 048
     Dates: start: 200909
  7. LISINOPRIL [Concomitant]
     Dosage: 1 DF, bid
     Route: 048
     Dates: start: 20090704
  8. TOPAMAX [Concomitant]
     Dosage: 50 mg, bid
     Route: 048
     Dates: start: 200909
  9. AMBIEN [Concomitant]
     Dosage: 10 mg, prn
     Dates: start: 2004

REACTIONS (2)
  - Pyrexia [Recovered/Resolved]
  - Thrombosis [Recovered/Resolved]
